FAERS Safety Report 5204592-4 (Version None)
Quarter: 2007Q1

REPORT INFORMATION
  Report Type: 
  Country: None (occurrence: None)
  Receive Date: 20070110
  Receipt Date: 20060518
  Transmission Date: 20070707
  Serious: Yes (Hospitalization)
  Sender: FDA-Public Use
  Company Number: US-BRISTOL-MYERS SQUIBB COMPANY-13382437

PATIENT
  Age: 35 Year
  Sex: Male

DRUGS (3)
  1. ABILIFY [Suspect]
     Indication: BIPOLAR I DISORDER
     Route: 048
     Dates: end: 20060518
  2. HYPOTENSIVE [Concomitant]
     Indication: HYPERTENSION
  3. ANTIDIABETIC AGENT [Concomitant]
     Indication: DIABETES MELLITUS

REACTIONS (1)
  - RASH GENERALISED [None]
